FAERS Safety Report 10143335 (Version 1)
Quarter: 2014Q2

REPORT INFORMATION
  Report Type: Spontaneous
  Country: US (occurrence: None)
  Receive Date: 20140429
  Receipt Date: 20140429
  Transmission Date: 20141212
  Serious: Yes (Life-Threatening, Hospitalization)
  Sender: FDA-Public Use
  Company Number: None

PATIENT
  Age: 68 Year
  Sex: Male
  Weight: 52.7 kg

DRUGS (2)
  1. ENOXAPARIN (GENERIC) [Suspect]
     Indication: DEEP VEIN THROMBOSIS
     Route: 058
     Dates: start: 20140415, end: 20140419
  2. ENOXAPARIN (GENERIC) [Suspect]
     Indication: PULMONARY EMBOLISM
     Route: 058
     Dates: start: 20140415, end: 20140419

REACTIONS (2)
  - Retroperitoneal haematoma [None]
  - Shock haemorrhagic [None]
